FAERS Safety Report 7564794-9 (Version None)
Quarter: 2011Q2

REPORT INFORMATION
  Report Type: 
  Country: None (occurrence: None)
  Receive Date: 20110622
  Receipt Date: 20101213
  Transmission Date: 20111010
  Serious: Yes (Life-Threatening)
  Sender: FDA-Public Use
  Company Number: US-MYLANLABS-2010S1021781

PATIENT
  Age: 64 Year
  Sex: Female

DRUGS (19)
  1. MACRODANTIN [Concomitant]
     Indication: PROPHYLAXIS URINARY TRACT INFECTION
  2. DUONEB [Concomitant]
     Route: 055
  3. BACITRACIN W/POLYMYXIN [Concomitant]
     Route: 047
     Dates: start: 20101108, end: 20101112
  4. CLOZAPINE [Suspect]
     Indication: PSYCHOTIC DISORDER
     Route: 048
     Dates: start: 20100920, end: 20101119
  5. RESTORIL [Concomitant]
     Indication: INSOMNIA
  6. LEVAQUIN [Concomitant]
     Indication: INSOMNIA
     Dates: start: 20100924, end: 20100930
  7. ZYPREXA [Concomitant]
  8. BISACODYL [Concomitant]
     Indication: CONSTIPATION
     Dosage: AT BEDTIME AND TWICE A WEEK
  9. COLACE [Concomitant]
     Indication: CONSTIPATION
  10. TRILEPTAL [Concomitant]
     Indication: CONVULSION
     Dates: end: 20101123
  11. ROCEPHIN [Concomitant]
     Route: 030
     Dates: start: 20101011, end: 20101017
  12. GUAIFENESIN [Concomitant]
  13. SEROQUEL [Concomitant]
  14. DESYREL [Concomitant]
     Indication: DEPRESSION
  15. ATIVAN [Concomitant]
  16. CIPROFLOXACIN HCL [Concomitant]
     Dates: start: 20101004, end: 20101008
  17. LIDOCAINE HYDROCHLORIDE [Concomitant]
     Dosage: TO MIX WITH ROCEPHIN
  18. ZOLOFT [Concomitant]
     Indication: DEPRESSION
  19. CLARITIN /00413701/ [Concomitant]

REACTIONS (3)
  - LEUKOPENIA [None]
  - AGRANULOCYTOSIS [None]
  - GRANULOCYTOPENIA [None]
